FAERS Safety Report 5267368-8 (Version None)
Quarter: 2007Q1

REPORT INFORMATION
  Report Type: 
  Country: None (occurrence: None)
  Receive Date: 20070316
  Receipt Date: 20070306
  Transmission Date: 20070707
  Serious: Yes (Other)
  Sender: FDA-Public Use
  Company Number: 2007AP01477

PATIENT
  Age: 52 Year
  Sex: Female

DRUGS (4)
  1. NEXIUM [Suspect]
     Route: 048
  2. METHADONE HCL [Suspect]
     Dates: start: 20050801
  3. FOSAMAX [Suspect]
  4. ASTHMA MEDICATIONS [Concomitant]

REACTIONS (2)
  - BONE DENSITY DECREASED [None]
  - RIB FRACTURE [None]
